FAERS Safety Report 7537875-3 (Version None)
Quarter: 2011Q2

REPORT INFORMATION
  Report Type: 
  Country: None (occurrence: None)
  Receive Date: 20110609
  Receipt Date: 20110525
  Transmission Date: 20111010
  Serious: No
  Sender: FDA-Public Use
  Company Number: US-B.I. PHARMACEUTICALS,INC./RIDGEFIELD-2011-BP-14057BP

PATIENT
  Age: 71 Year
  Sex: Male

DRUGS (3)
  1. PRADAXA [Suspect]
     Indication: ATRIAL FIBRILLATION
     Dosage: 300 MG
     Route: 048
     Dates: start: 20110512
  2. ASPIRIN [Concomitant]
  3. SOTALOL HCL [Concomitant]
     Indication: ARRHYTHMIA

REACTIONS (2)
  - INCREASED TENDENCY TO BRUISE [None]
  - FALL [None]
